FAERS Safety Report 7045836-6 (Version None)
Quarter: 2010Q4

REPORT INFORMATION
  Report Type: 
  Country: None (occurrence: None)
  Receive Date: 20101014
  Receipt Date: 20101005
  Transmission Date: 20110411
  Serious: Yes (Hospitalization)
  Sender: FDA-Public Use
  Company Number: US-PURDUE-USA-2010-0048884

PATIENT
  Sex: Female

DRUGS (2)
  1. OXYCONTIN [Suspect]
     Indication: OSTEOMYELITIS
     Dosage: UNK
     Dates: start: 20080101
  2. OXYCONTIN [Suspect]
     Indication: COMPLEX REGIONAL PAIN SYNDROME

REACTIONS (1)
  - COMA [None]
